FAERS Safety Report 6549397-7 (Version None)
Quarter: 2010Q1

REPORT INFORMATION
  Report Type: 
  Country: None (occurrence: None)
  Receive Date: 20100125
  Receipt Date: 20100113
  Transmission Date: 20100710
  Serious: Yes (Hospitalization)
  Sender: FDA-Public Use
  Company Number: GB-JNJFOC-20100104132

PATIENT
  Age: 66 Year
  Sex: Female
  Weight: 52 kg

DRUGS (11)
  1. REMICADE [Suspect]
     Indication: RHEUMATOID ARTHRITIS
     Route: 042
  2. METHOTREXATE [Concomitant]
  3. FOLIC ACID [Concomitant]
  4. ROFECOXIB [Concomitant]
  5. ASPIRIN [Concomitant]
  6. CLOPIDOGREL [Concomitant]
  7. BISOPROLOL FUMARATE [Concomitant]
  8. RAMIPRIL [Concomitant]
  9. SIMVASTATIN [Concomitant]
  10. GLYCERYL TRINITRATE [Concomitant]
  11. BENDROFLUMETHIAZIDE [Concomitant]

REACTIONS (3)
  - ACUTE CORONARY SYNDROME [None]
  - HYPERTENSION [None]
  - NON-CARDIAC CHEST PAIN [None]
